FAERS Safety Report 9144896 (Version 1)
Quarter: 2013Q1

REPORT INFORMATION
  Report Type: Spontaneous
  Country: AU (occurrence: AU)
  Receive Date: 20130307
  Receipt Date: 20130307
  Transmission Date: 20140127
  Serious: Yes (Hospitalization)
  Sender: FDA-Public Use
  Company Number: AU-009507513-1303AUS001451

PATIENT
  Age: 44 Year
  Sex: Male
  Weight: 81 kg

DRUGS (1)
  1. RIBAVIRIN [Suspect]
     Dosage: 800 MG, UNK
     Dates: start: 20121123

REACTIONS (1)
  - Pancreatitis acute [Not Recovered/Not Resolved]
